FAERS Safety Report 7991775-3 (Version None)
Quarter: 2011Q4

REPORT INFORMATION
  Report Type: 
  Country: None (occurrence: None)
  Receive Date: 20111219
  Receipt Date: 20111212
  Transmission Date: 20120403
  Serious: Yes (Hospitalization, Other)
  Sender: FDA-Public Use
  Company Number: PHHY2011JP67166

PATIENT
  Weight: 1288 kg

DRUGS (5)
  1. RIFAMPICIN [Suspect]
     Route: 064
  2. ETHAMBUTOL HYDROCHLORIDE [Suspect]
     Route: 064
  3. RITODRINE HYDROCHLORIDE [Suspect]
     Route: 064
  4. BETAMETHASONE [Suspect]
     Dosage: UNK
     Route: 064
  5. ISONIAZID [Suspect]
     Dosage: UNK
     Route: 064

REACTIONS (5)
  - CONGENITAL TUBERCULOSIS [None]
  - LOW BIRTH WEIGHT BABY [None]
  - PREMATURE BABY [None]
  - FOETAL EXPOSURE DURING PREGNANCY [None]
  - NEONATAL RESPIRATORY DISTRESS SYNDROME [None]
